FAERS Safety Report 6029789-5 (Version None)
Quarter: 2008Q4

REPORT INFORMATION
  Report Type: 
  Country: None (occurrence: None)
  Receive Date: 20081222
  Receipt Date: 20081008
  Transmission Date: 20090506
  Serious: No
  Sender: FDA-Public Use
  Company Number: US-WYE-H06315908

PATIENT
  Age: 38 Year
  Sex: Female
  Weight: 54.48 kg

DRUGS (6)
  1. PRISTIQ [Suspect]
     Indication: DEPRESSION
     Dosage: 50 MG 1X PER 1 DAY, ORAL
     Route: 048
     Dates: start: 20080901
  2. AMBIEN [Concomitant]
  3. LORAZEPAM [Concomitant]
  4. LEXAPRO [Concomitant]
  5. GEODON [Concomitant]
  6. LAMICTAL [Concomitant]

REACTIONS (4)
  - HEADACHE [None]
  - MYDRIASIS [None]
  - VISION BLURRED [None]
  - VISUAL ACUITY REDUCED [None]
